FAERS Safety Report 6664804-7 (Version None)
Quarter: 2010Q1

REPORT INFORMATION
  Report Type: 
  Country: None (occurrence: None)
  Receive Date: 20100330
  Receipt Date: 20100318
  Transmission Date: 20100710
  Serious: Yes (Other)
  Sender: FDA-Public Use
  Company Number: 2010-0908

PATIENT
  Sex: Female
  Weight: 64 kg

DRUGS (6)
  1. DYSPORT [Suspect]
     Indication: SKIN COSMETIC PROCEDURE
     Dosage: 250 UNITS (250 UNITS, NUMBER OF CYCLES NOT REPORTED), PARENTERAL
     Route: 051
     Dates: start: 20070101
  2. BOTULINUM TOXIN TYPE A [Suspect]
  3. TRITAZIDE (SALUTEC) [Concomitant]
  4. TULIP (ATORVASTATIN) [Concomitant]
  5. DICLO DUO (DICLOFENAC SODIUM) [Concomitant]
  6. ASPIRIN [Concomitant]

REACTIONS (1)
  - LEUKAEMIA [None]
